FAERS Safety Report 23749335 (Version 1)
Quarter: 2024Q2

REPORT INFORMATION
  Report Type: Spontaneous
  Country: US (occurrence: None)
  Receive Date: 20240416
  Receipt Date: 20240416
  Transmission Date: 20240716
  Serious: Yes (Other)
  Sender: FDA-Public Use
  Company Number: None

PATIENT
  Age: 66 Year
  Sex: Female
  Weight: 103.5 kg

DRUGS (8)
  1. PYRIDOXINE\SEMAGLUTIDE [Suspect]
     Active Substance: PYRIDOXINE\SEMAGLUTIDE
     Indication: Weight decreased
     Dosage: OTHER QUANTITY : 1 INJECTION(S)?OTHER FREQUENCY : ONCE PER WEEK?
     Route: 058
     Dates: start: 20240401
  2. TOPROL XL [Concomitant]
     Active Substance: METOPROLOL SUCCINATE
  3. inindapamide [Concomitant]
  4. LISINOPRIL [Concomitant]
     Active Substance: LISINOPRIL
  5. OMEPRAZOLE [Concomitant]
     Active Substance: OMEPRAZOLE
  6. PRALUENT [Concomitant]
     Active Substance: ALIROCUMAB
  7. b 12 supplement [Concomitant]
  8. daily aspirin [Concomitant]

REACTIONS (4)
  - Nausea [None]
  - Fatigue [None]
  - Blood pressure decreased [None]
  - Suspected counterfeit product [None]

NARRATIVE: CASE EVENT DATE: 20240401
